FAERS Safety Report 4392209-0 (Version None)
Quarter: 2004Q3

REPORT INFORMATION
  Report Type: 
  Country: None (occurrence: None)
  Receive Date: 20040702
  Receipt Date: 20040209
  Transmission Date: 20050211
  Serious: Yes (Other)
  Sender: FDA-Public Use
  Company Number: 2004UW02273

PATIENT
  Age: 53 Year
  Sex: Male
  Weight: 86.1834 kg

DRUGS (1)
  1. CRESTOR [Suspect]
     Indication: BLOOD CHOLESTEROL INCREASED
     Dosage: 10 MG PO
     Route: 048
     Dates: start: 20040205

REACTIONS (5)
  - ABDOMINAL PAIN [None]
  - DIZZINESS [None]
  - DRY MOUTH [None]
  - KERATOCONJUNCTIVITIS SICCA [None]
  - MUSCLE CRAMP [None]
